FAERS Safety Report 12313865 (Version 1)
Quarter: 2016Q2

REPORT INFORMATION
  Report Type: Spontaneous
  Country: US (occurrence: US)
  Receive Date: 20160428
  Receipt Date: 20160428
  Transmission Date: 20160815
  Serious: No
  Sender: FDA-Public Use
  Company Number: US-BAUSCH-BL-2015-018027

PATIENT
  Sex: Male

DRUGS (1)
  1. ALDARA [Suspect]
     Active Substance: IMIQUIMOD
     Indication: PRODUCT USED FOR UNKNOWN INDICATION

REACTIONS (3)
  - Hair colour changes [Unknown]
  - Skin hyperpigmentation [Unknown]
  - Vitiligo [Unknown]
